FAERS Safety Report 9536724 (Version 1)
Quarter: 2013Q3

REPORT INFORMATION
  Report Type: Spontaneous
  Country: BR (occurrence: BR)
  Receive Date: 20130919
  Receipt Date: 20130919
  Transmission Date: 20140515
  Serious: Yes (Other)
  Sender: FDA-Public Use
  Company Number: BR-PFIZER INC-2013264938

PATIENT
  Age: 58 Year
  Sex: Male

DRUGS (3)
  1. VIAGRA [Suspect]
     Indication: PEYRONIE^S DISEASE
     Dosage: A HALF OF TABLET OF 50MG (25 MG), PER WEEK
     Route: 048
     Dates: start: 20090912
  2. VIAGRA [Suspect]
     Indication: PENILE SWELLING
  3. VIAGRA [Suspect]
     Indication: VASODILATION PROCEDURE

REACTIONS (5)
  - Penis disorder [Unknown]
  - Transplant rejection [Unknown]
  - Penile pain [Unknown]
  - Dysuria [Unknown]
  - Off label use [Unknown]
